FAERS Safety Report 5297163-5 (Version None)
Quarter: 2007Q1

REPORT INFORMATION
  Report Type: 
  Country: None (occurrence: None)
  Receive Date: 20070201
  Receipt Date: 20061009
  Transmission Date: 20070707
  Serious: No
  Sender: FDA-Public Use
  Company Number: 2006PV022803

PATIENT
  Age: 72 Year
  Sex: Female
  Weight: 92.9874 kg

DRUGS (6)
  1. BYETTA [Suspect]
     Indication: DIABETES MELLITUS NON-INSULIN-DEPENDENT
     Dosage: 5 MCG;BID;SC
     Route: 058
     Dates: start: 20060801
  2. GLUCOPHAGE [Concomitant]
  3. AMARYL [Concomitant]
  4. NOVOLOG MIX 70/30 [Concomitant]
  5. ALTACE [Concomitant]
  6. NIFEDIPINE [Concomitant]

REACTIONS (13)
  - BLOOD GLUCOSE DECREASED [None]
  - CONSTIPATION [None]
  - DECREASED APPETITE [None]
  - DIZZINESS [None]
  - DYSPEPSIA [None]
  - FATIGUE [None]
  - INJECTION SITE BRUISING [None]
  - INJECTION SITE EXTRAVASATION [None]
  - INJECTION SITE HAEMORRHAGE [None]
  - INJECTION SITE PAIN [None]
  - NAUSEA [None]
  - VOMITING [None]
  - WEIGHT DECREASED [None]
